FAERS Safety Report 4297332-7 (Version None)
Quarter: 2004Q1

REPORT INFORMATION
  Report Type: 
  Country: None (occurrence: None)
  Receive Date: 20040218
  Receipt Date: 20040119
  Transmission Date: 20041129
  Serious: No
  Sender: FDA-Public Use
  Company Number: PHRM2004FR00638

PATIENT
  Age: 74 Year
  Sex: Female
  Weight: 74 kg

DRUGS (8)
  1. LAMISIL [Suspect]
     Indication: FUNGAL SKIN INFECTION
     Dosage: 250 MG, QD
     Route: 048
     Dates: start: 20031222, end: 20031224
  2. LEXOMIL [Concomitant]
     Dosage: UNK, UNK
     Route: 048
  3. PERSANTIN INJ [Concomitant]
     Dosage: UNK, UNK
     Route: 048
  4. TAREG [Concomitant]
     Dosage: UNK, UNK
     Route: 048
  5. ALDACTONE [Concomitant]
     Dosage: UNK, UNK
     Route: 048
  6. CELECTOL [Concomitant]
     Dosage: UNK, UNK
     Route: 048
  7. ELISOR [Concomitant]
     Dosage: UNK, UNK
     Route: 048
  8. DEROXAT [Concomitant]
     Dosage: UNK, UNK
     Route: 048

REACTIONS (2)
  - PETECHIAE [None]
  - PURPURA [None]
